FAERS Safety Report 6385479-0 (Version None)
Quarter: 2009Q4

REPORT INFORMATION
  Report Type: 
  Country: None (occurrence: None)
  Receive Date: 20091002
  Receipt Date: 20080919
  Transmission Date: 20100525
  Serious: Yes (Other)
  Sender: FDA-Public Use
  Company Number: US-ASTRAZENECA-2008UW19744

PATIENT
  Age: 73 Year
  Sex: Female

DRUGS (3)
  1. ARIMIDEX [Suspect]
     Indication: BREAST CANCER FEMALE
     Dosage: 1MG
     Route: 048
  2. ASPIRIN [Concomitant]
  3. GLIBERIDE [Concomitant]

REACTIONS (7)
  - ARTHRALGIA [None]
  - CARPAL TUNNEL SYNDROME [None]
  - CEREBROVASCULAR ACCIDENT [None]
  - COLD SWEAT [None]
  - HEADACHE [None]
  - HOT FLUSH [None]
  - NAUSEA [None]
